FAERS Safety Report 9811636 (Version 3)
Quarter: 2015Q3

REPORT INFORMATION
  Report Type: Spontaneous
  Country: US (occurrence: US)
  Receive Date: 20140110
  Receipt Date: 20150728
  Transmission Date: 20151125
  Serious: Yes (Death, Other)
  Sender: FDA-Public Use
  Company Number: US-SANOFI-AVENTIS-2013SA059264

PATIENT
  Age: 66 Year
  Sex: Male

DRUGS (1)
  1. PLAVIX [Suspect]
     Active Substance: CLOPIDOGREL BISULFATE
     Indication: STENT PLACEMENT
     Route: 048
     Dates: start: 20050101, end: 20110819

REACTIONS (2)
  - Cerebral haemorrhage [Fatal]
  - Multiple injuries [Unknown]

NARRATIVE: CASE EVENT DATE: 201107
